FAERS Safety Report 23442644 (Version 1)
Quarter: 2024Q1

REPORT INFORMATION
  Report Type: Spontaneous
  Country: US (occurrence: None)
  Receive Date: 20240125
  Receipt Date: 20240125
  Transmission Date: 20240410
  Serious: Yes (Death, Life-Threatening, Hospitalization)
  Sender: FDA-Public Use
  Company Number: US-HQ-20240003

PATIENT
  Age: 9 Decade
  Sex: Male

DRUGS (8)
  1. LINEZOLID [Suspect]
     Active Substance: LINEZOLID
     Indication: Nocardiosis
     Dosage: ON HOSPITAL DAY 20, LINEZOLID WAS DISCONTINUED DUE TO PANCYTOPENIA ()
  2. MEROPENEM [Suspect]
     Active Substance: MEROPENEM
     Indication: Nocardiosis
     Dosage: ()
  3. IMIPENEM [Suspect]
     Active Substance: IMIPENEM
     Indication: Nocardiosis
     Dosage: IMIPENEM WAS DISCONTINUED ON HD 14 ()
  4. IMIPENEM [Suspect]
     Active Substance: IMIPENEM
     Indication: Nocardiosis
     Dosage: IMIPENEM RESTART ON HD 20 ()
  5. SULFAMETHOXAZOLE\TRIMETHOPRIM [Suspect]
     Active Substance: SULFAMETHOXAZOLE\TRIMETHOPRIM
     Indication: Nocardiosis
     Dosage: ON HOSPITAL DAY 7, TMP-SMX WAS DISCONTINUED DUE TO ACUTE KIDNEY INJURY AND HYPERKALAEMIA ()
  6. PREDNISONE [Concomitant]
     Active Substance: PREDNISONE
     Indication: Sarcoidosis
  7. PREDNISONE [Concomitant]
     Active Substance: PREDNISONE
     Indication: Sarcoidosis
  8. TEDIZOLID [Suspect]
     Active Substance: TEDIZOLID
     Indication: Nocardiosis

REACTIONS (2)
  - Drug ineffective [Fatal]
  - Off label use [Unknown]
